FAERS Safety Report 7795814-4 (Version None)
Quarter: 2011Q4

REPORT INFORMATION
  Report Type: 
  Country: None (occurrence: None)
  Receive Date: 20111004
  Receipt Date: 20110926
  Transmission Date: 20120403
  Serious: Yes (Other)
  Sender: FDA-Public Use
  Company Number: US-ABBOTT-11P-163-0859234-00

PATIENT
  Sex: Female
  Weight: 60.382 kg

DRUGS (7)
  1. ENBREL [Suspect]
     Indication: RHEUMATOID ARTHRITIS
     Dates: start: 20110506, end: 20110727
  2. SULFACETAMIDE SODIUM [Suspect]
     Indication: OPEN WOUND
     Dates: start: 20110514, end: 20110522
  3. TRIAMTERENE [Suspect]
     Indication: OPEN WOUND
     Dates: start: 20110501
  4. HUMIRA [Suspect]
     Indication: RHEUMATOID ARTHRITIS
     Dates: start: 20090801, end: 20110401
  5. METHOTREXATE [Suspect]
     Indication: RHEUMATOID ARTHRITIS
  6. CELEBREX [Suspect]
     Indication: RASH
  7. HUMIRA [Suspect]
     Dates: start: 20110601

REACTIONS (13)
  - FALL [None]
  - PSORIASIS [None]
  - RHEUMATOID ARTHRITIS [None]
  - OPEN WOUND [None]
  - IMPAIRED HEALING [None]
  - JOINT STIFFNESS [None]
  - TREMOR [None]
  - CONTUSION [None]
  - DRUG INEFFECTIVE [None]
  - MEMORY IMPAIRMENT [None]
  - RASH [None]
  - ALOPECIA [None]
  - WEIGHT DECREASED [None]
